FAERS Safety Report 12859559 (Version 1)
Quarter: 2016Q4

REPORT INFORMATION
  Report Type: Spontaneous
  Country: FR (occurrence: FR)
  Receive Date: 20161018
  Receipt Date: 20161018
  Transmission Date: 20170207
  Serious: Yes (Hospitalization)
  Sender: FDA-Public Use
  Company Number: FR-SA-2016SA185634

PATIENT
  Age: 80 Year
  Sex: Male

DRUGS (9)
  1. PREVISCAN [Suspect]
     Active Substance: FLUINDIONE
     Indication: CARDIAC VALVE PROSTHESIS USER
     Route: 048
     Dates: end: 20160909
  2. AUGMENTIN [Concomitant]
     Active Substance: AMOXICILLIN\CLAVULANATE POTASSIUM
  3. COUMADINE [Suspect]
     Active Substance: WARFARIN SODIUM
     Indication: CARDIAC VALVE PROSTHESIS USER
     Route: 065
     Dates: start: 20160914, end: 20160917
  4. COUMADINE [Suspect]
     Active Substance: WARFARIN SODIUM
     Indication: CARDIAC VALVE PROSTHESIS USER
     Route: 065
     Dates: start: 20160917, end: 20160918
  5. SECTRAL [Concomitant]
     Active Substance: ACEBUTOLOL HYDROCHLORIDE
  6. CALCIPARINE [Suspect]
     Active Substance: HEPARIN CALCIUM
     Indication: CARDIAC VALVE PROSTHESIS USER
     Dosage: FREQUENCY: 3 DAYS
     Route: 058
     Dates: start: 20160903, end: 20160909
  7. LOVENOX [Suspect]
     Active Substance: ENOXAPARIN SODIUM
     Indication: CARDIAC VALVE PROSTHESIS USER
     Dosage: 6000 IU/0.6ML
     Route: 058
     Dates: start: 20160909, end: 20160919
  8. COUMADINE [Suspect]
     Active Substance: WARFARIN SODIUM
     Indication: CARDIAC VALVE PROSTHESIS USER
     Route: 065
     Dates: start: 20160919
  9. DEROXAT [Concomitant]
     Active Substance: PAROXETINE HYDROCHLORIDE

REACTIONS (2)
  - Mesenteric haemorrhage [Not Recovered/Not Resolved]
  - Condition aggravated [Not Recovered/Not Resolved]

NARRATIVE: CASE EVENT DATE: 20160909
